FAERS Safety Report 4741875-6 (Version None)
Quarter: 2005Q3

REPORT INFORMATION
  Report Type: 
  Country: None (occurrence: None)
  Receive Date: 20050803
  Receipt Date: 20050222
  Transmission Date: 20060218
  Serious: Yes (Other)
  Sender: FDA-Public Use
  Company Number: 2005020991

PATIENT
  Age: 52 Year
  Sex: Female

DRUGS (10)
  1. CAMPTOSAR [Suspect]
     Indication: COLON CANCER
     Dosage: SEE IMAGE
     Route: 042
     Dates: start: 20030301
  2. CAMPTOSAR [Suspect]
     Indication: COLON CANCER
     Dosage: SEE IMAGE
     Route: 042
     Dates: start: 20050104
  3. WARFARIN SODIUM [Concomitant]
  4. POTASSIUM CHLORIDE [Concomitant]
  5. VALSARTAN [Concomitant]
  6. CARISOPRODOL (CARISOPRODOL) [Concomitant]
  7. PALONOSETRON (PALONOSETRON) [Concomitant]
  8. DECADRON [Concomitant]
  9. . [Concomitant]
  10. . [Concomitant]

REACTIONS (8)
  - CHILLS [None]
  - COLON CANCER [None]
  - DISEASE PROGRESSION [None]
  - DIZZINESS [None]
  - HYPERSENSITIVITY [None]
  - NAUSEA [None]
  - PULMONARY EMBOLISM [None]
  - VOMITING [None]
